FAERS Safety Report 6805451-3 (Version None)
Quarter: 2010Q2

REPORT INFORMATION
  Report Type: 
  Country: None (occurrence: None)
  Receive Date: 20100628
  Receipt Date: 20080117
  Transmission Date: 20101027
  Serious: No
  Sender: FDA-Public Use
  Company Number: US-PFIZER INC-2007094537

PATIENT
  Sex: Male
  Weight: 72.7 kg

DRUGS (4)
  1. XALATAN [Suspect]
     Indication: GLAUCOMA
     Dates: start: 20070601
  2. ARICEPT [Concomitant]
  3. COREG [Concomitant]
  4. NORVASC [Concomitant]

REACTIONS (1)
  - HAIR COLOUR CHANGES [None]
